FAERS Safety Report 20112388 (Version 1)
Quarter: 2021Q4

REPORT INFORMATION
  Report Type: Spontaneous
  Country: MA (occurrence: MA)
  Receive Date: 20211125
  Receipt Date: 20211125
  Transmission Date: 20220303
  Serious: Yes (Other)
  Sender: FDA-Public Use
  Company Number: MA-ALS-000453

PATIENT
  Age: 49 Year
  Sex: Female

DRUGS (1)
  1. METFORMIN [Suspect]
     Active Substance: METFORMIN HYDROCHLORIDE
     Indication: Type 2 diabetes mellitus
     Dosage: 850 MG PER DAY
     Route: 065

REACTIONS (5)
  - Toxic encephalopathy [Unknown]
  - Dysarthria [Unknown]
  - Altered state of consciousness [Unknown]
  - Somnolence [Unknown]
  - Akinesia [Unknown]
